FAERS Safety Report 16669964 (Version 1)
Quarter: 2019Q3

REPORT INFORMATION
  Report Type: Spontaneous
  Country: US (occurrence: US)
  Receive Date: 20190620
  Receipt Date: 20190620
  Transmission Date: 20191004
  Serious: Yes (Hospitalization)
  Sender: FDA-Public Use
  Company Number: None

PATIENT
  Age: 76 Year
  Sex: Female

DRUGS (16)
  1. BUSPIRONE TAB [Concomitant]
  2. BIOTIN TAB [Concomitant]
  3. EEROSUL TAB [Concomitant]
  4. PREDNISONE TAB [Concomitant]
     Active Substance: PREDNISONE
  5. VITAMIN D CAP [Concomitant]
  6. TRAZODONE TAB [Concomitant]
  7. MYCOPHENOLAT TAB [Concomitant]
  8. CHLORHEX GLU SOL [Concomitant]
  9. METOPROL SUC TAB [Concomitant]
  10. PANTOPRAZOLE TAB [Concomitant]
  11. PRAMIPEXOLE TAB [Concomitant]
  12. TORSEMIDE TAB [Concomitant]
  13. VESICARE TAB [Concomitant]
  14. ADCIRCA [Suspect]
     Active Substance: TADALAFIL
     Dosage: ?          OTHER DOSE:2 T;?
     Route: 048
     Dates: start: 20160119
  15. PRAVASTATIN TAB [Concomitant]
  16. TORSEMIDE TAB [Concomitant]

REACTIONS (1)
  - Hospitalisation [None]

NARRATIVE: CASE EVENT DATE: 20190604
